FAERS Safety Report 13453204 (Version 3)
Quarter: 2017Q4

REPORT INFORMATION
  Report Type: Spontaneous
  Country: TN (occurrence: TN)
  Receive Date: 20170418
  Receipt Date: 20171222
  Transmission Date: 20180320
  Serious: Yes (Other)
  Sender: FDA-Public Use
  Company Number: TN-PFIZER INC-2017016821

PATIENT
  Age: 4 Year
  Sex: Female

DRUGS (4)
  1. METHOTREXATE SODIUM. [Suspect]
     Active Substance: METHOTREXATE SODIUM
     Indication: ACUTE LYMPHOCYTIC LEUKAEMIA
     Dosage: 5 G/M2, CYCLIC, 4 CYCLES EVERY 15 DAYS OF HIGH DOSE
     Route: 042
  2. HYDROCORTISONE. [Concomitant]
     Active Substance: HYDROCORTISONE
     Indication: ACUTE LYMPHOCYTIC LEUKAEMIA
     Dosage: 24 MG, CYCLIC
     Route: 037
  3. CYTARABINE. [Concomitant]
     Active Substance: CYTARABINE
     Dosage: 36 MG, CYCLIC
     Route: 037
  4. METHOTREXATE SODIUM. [Suspect]
     Active Substance: METHOTREXATE SODIUM
     Indication: PROPHYLAXIS
     Dosage: 12 MG, CYCLIC
     Route: 037

REACTIONS (2)
  - Neurotoxicity [Recovered/Resolved]
  - Cerebellar syndrome [Recovered/Resolved]
